FAERS Safety Report 23964590 (Version 2)
Quarter: 2024Q3

REPORT INFORMATION
  Report Type: Report from Study
  Country: CA (occurrence: CA)
  Receive Date: 20240612
  Receipt Date: 20240905
  Transmission Date: 20241016
  Serious: Yes (Other)
  Sender: ABBVIE
  Company Number: CA-ABBVIE-5795133

PATIENT
  Age: 18 Year
  Sex: Female

DRUGS (3)
  1. SKYRIZI [Suspect]
     Active Substance: RISANKIZUMAB-RZAA
     Indication: Crohn^s disease
     Route: 058
  2. SKYRIZI [Suspect]
     Active Substance: RISANKIZUMAB-RZAA
     Route: 058
  3. SKYRIZI [Suspect]
     Active Substance: RISANKIZUMAB-RZAA
     Indication: Crohn^s disease
     Dosage: FREQUENCY TEXT: AT WEEK 0, 4, AND 8
     Route: 042
     Dates: start: 20231130

REACTIONS (9)
  - Hip surgery [Unknown]
  - Crohn^s disease [Unknown]
  - Muscle spasms [Unknown]
  - Abdominal distension [Unknown]
  - Diarrhoea [Unknown]
  - Haematochezia [Unknown]
  - Arthralgia [Not Recovered/Not Resolved]
  - Night sweats [Unknown]
  - Rash [Unknown]

NARRATIVE: CASE EVENT DATE: 20240101
